FAERS Safety Report 11883344 (Version 1)
Quarter: 2015Q4

REPORT INFORMATION
  Report Type: Spontaneous
  Country: US (occurrence: US)
  Receive Date: 20151231
  Receipt Date: 20151231
  Transmission Date: 20160305
  Serious: No
  Sender: FDA-Public Use
  Company Number: US-PFIZER INC-2015282502

PATIENT
  Age: 83 Year
  Sex: Female

DRUGS (11)
  1. AMIODARONE [Concomitant]
     Active Substance: AMIODARONE
     Dosage: 10 MG, 1X/DAY
     Route: 048
     Dates: start: 20130227
  2. ACETAMINOPHEN W/HYDROCODONE [Concomitant]
     Active Substance: ACETAMINOPHEN\HYDROCODONE
     Dosage: UNK, AS NEEDED (HYDROCODONE 5MG, PARACETAMOL 325MG)
     Dates: start: 20150708
  3. LATANOPROST. [Concomitant]
     Active Substance: LATANOPROST
     Dosage: 1 GTT, DAILY ((IN LEFT EYE)
     Dates: start: 20130130
  4. SIMVASTATIN. [Concomitant]
     Active Substance: SIMVASTATIN
     Dosage: 20 MG, 1X/DAY
     Route: 048
     Dates: start: 20130130
  5. EMLA [Concomitant]
     Active Substance: LIDOCAINE\PRILOCAINE
     Dosage: 2.5 %, UNK
     Route: 061
     Dates: start: 20140820
  6. METOPROLOL TARTRATE. [Concomitant]
     Active Substance: METOPROLOL TARTRATE
     Dosage: 50 MG, 2X/DAY
     Route: 048
     Dates: start: 20130130
  7. TRUBIOTICS ONE A DAY [Concomitant]
     Dosage: UNK
     Dates: start: 20131204
  8. TIMOLOL. [Concomitant]
     Active Substance: TIMOLOL
     Dosage: 1 GTT, DAILY
     Route: 047
     Dates: start: 20130130
  9. INLYTA [Suspect]
     Active Substance: AXITINIB
     Indication: RENAL CANCER STAGE III
     Dosage: 5 MG, 2X/DAY
     Route: 048
     Dates: start: 20150821
  10. MEGACE [Concomitant]
     Active Substance: MEGESTROL ACETATE
     Dosage: 10 ML, 2X/DAY (ON HOUR PRIOR TO MEALS)
     Route: 048
     Dates: start: 20150804
  11. ZOFRAN [Concomitant]
     Active Substance: ONDANSETRON HYDROCHLORIDE
     Indication: NAUSEA
     Dosage: 8 MG, AS NEEDED (EVERY 4 HOURS)
     Dates: start: 20150527

REACTIONS (1)
  - Malaise [Unknown]
